FAERS Safety Report 5786460-2 (Version None)
Quarter: 2008Q2

REPORT INFORMATION
  Report Type: 
  Country: None (occurrence: None)
  Receive Date: 20080619
  Receipt Date: 20080610
  Transmission Date: 20081010
  Serious: Yes (Other)
  Sender: FDA-Public Use
  Company Number: 2008AP000273

PATIENT
  Age: 21 Year
  Sex: Female

DRUGS (3)
  1. PAROXETINE HCL [Suspect]
     Indication: DEPRESSION
     Dosage: 20 MG; TAB; PO ; QD; 0.5 ML; SYR; PO
     Route: 048
     Dates: start: 20020625
  2. AMITRIPTLINE HCL [Concomitant]
  3. TRAZODONE HCL [Concomitant]

REACTIONS (12)
  - ANXIETY [None]
  - DRUG WITHDRAWAL SYNDROME [None]
  - FATIGUE [None]
  - FEAR [None]
  - GASTROINTESTINAL DISORDER [None]
  - HALLUCINATION [None]
  - INJURY [None]
  - MEDICATION ERROR [None]
  - MOOD SWINGS [None]
  - NIGHTMARE [None]
  - PHARMACEUTICAL PRODUCT COMPLAINT [None]
  - SLEEP DISORDER [None]
